FAERS Safety Report 9578936 (Version 1)
Quarter: 2013Q4

REPORT INFORMATION
  Report Type: Spontaneous
  Country: US (occurrence: US)
  Receive Date: 20131001
  Receipt Date: 20131001
  Transmission Date: 20140711
  Serious: No
  Sender: FDA-Public Use
  Company Number: US-AMGEN-USASP2013015548

PATIENT
  Age: 14 Year
  Sex: Male
  Weight: 70.3 kg

DRUGS (6)
  1. ENBREL [Suspect]
     Indication: PSORIASIS
     Dosage: 50 MG, 2 TIMES/WK (72-96 HOURS APART)
     Route: 058
  2. CLARINEX                           /01202601/ [Concomitant]
     Dosage: 5 MG, UNK
  3. FISH OIL [Concomitant]
     Dosage: UNK
  4. VITAMIN D                          /00107901/ [Concomitant]
     Dosage: 1000 UNIT, UNK
  5. MULTIVITAMINS, PLAIN [Concomitant]
     Dosage: UNK
  6. FOLIC ACID [Concomitant]
     Dosage: 5 MG, UNK

REACTIONS (2)
  - Fatigue [Unknown]
  - Headache [Unknown]
